FAERS Safety Report 17164902 (Version 1)
Quarter: 2019Q4

REPORT INFORMATION
  Report Type: Spontaneous
  Country: FR (occurrence: FR)
  Receive Date: 20191217
  Receipt Date: 20191217
  Transmission Date: 20200122
  Serious: Yes (Life-Threatening)
  Sender: FDA-Public Use
  Company Number: FR-MYLANLABS-2019M1123208

PATIENT
  Age: 88 Year
  Sex: Female
  Weight: 45 kg

DRUGS (3)
  1. CAPTOPRIL. [Concomitant]
     Active Substance: CAPTOPRIL
     Dosage: UNK
     Route: 048
  2. SOTALOL. [Suspect]
     Active Substance: SOTALOL
     Indication: TACHYCARDIA
     Dosage: 400 MILLIGRAM, QD
     Route: 048
     Dates: start: 20190219, end: 20190220
  3. AMIODARONE [Concomitant]
     Active Substance: AMIODARONE
     Dosage: UNK
     Route: 048

REACTIONS (2)
  - Atrioventricular block [Recovered/Resolved]
  - Conduction disorder [Recovered/Resolved]

NARRATIVE: CASE EVENT DATE: 20190220
